FAERS Safety Report 26170870 (Version 1)
Quarter: 2025Q4

REPORT INFORMATION
  Report Type: Spontaneous
  Country: EU (occurrence: EU)
  Receive Date: 20251217
  Receipt Date: 20251217
  Transmission Date: 20260118
  Serious: Yes (Hospitalization)
  Sender: PFIZER
  Company Number: None

PATIENT
  Age: 30 Year
  Sex: Female

DRUGS (6)
  1. MEDROL [Suspect]
     Active Substance: METHYLPREDNISOLONE
     Indication: Drug abuse
     Dosage: 160 MG
     Route: 048
     Dates: start: 20251129, end: 20251129
  2. MEDROL [Suspect]
     Active Substance: METHYLPREDNISOLONE
     Indication: Overdose
  3. IBUPROFEN [Suspect]
     Active Substance: IBUPROFEN
     Indication: Intentional overdose
     Dosage: 13 DF
     Route: 048
     Dates: start: 20251129, end: 20251129
  4. IBUPROFEN [Suspect]
     Active Substance: IBUPROFEN
     Indication: Drug abuse
  5. VOLTAREN [Suspect]
     Active Substance: DICLOFENAC SODIUM
     Indication: Intentional overdose
     Dosage: 375 MG
     Route: 048
     Dates: start: 20251129, end: 20251129
  6. VOLTAREN [Suspect]
     Active Substance: DICLOFENAC SODIUM
     Indication: Drug abuse

REACTIONS (3)
  - Intentional overdose [Not Recovered/Not Resolved]
  - Drug abuse [Not Recovered/Not Resolved]
  - Antisocial behaviour [Not Recovered/Not Resolved]

NARRATIVE: CASE EVENT DATE: 20251129
